FAERS Safety Report 19445108 (Version 1)
Quarter: 2021Q2

REPORT INFORMATION
  Report Type: Spontaneous
  Country: FR (occurrence: FR)
  Receive Date: 20210621
  Receipt Date: 20210621
  Transmission Date: 20210717
  Serious: Yes (Other)
  Sender: FDA-Public Use
  Company Number: FR-ALSI-2021000183

PATIENT
  Age: 21 Year
  Sex: Male

DRUGS (1)
  1. NITROUS OXIDE. [Suspect]
     Active Substance: NITROUS OXIDE
     Indication: SUBSTANCE USE DISORDER
     Route: 055

REACTIONS (2)
  - Paraesthesia [Not Recovered/Not Resolved]
  - Substance use disorder [Not Recovered/Not Resolved]
